FAERS Safety Report 7611291-8 (Version None)
Quarter: 2011Q3

REPORT INFORMATION
  Report Type: 
  Country: None (occurrence: None)
  Receive Date: 20110715
  Receipt Date: 20110630
  Transmission Date: 20111222
  Serious: Yes (Other)
  Sender: FDA-Public Use
  Company Number: KP-WATSON-2011-07565

PATIENT
  Age: 67 Year
  Sex: Female

DRUGS (2)
  1. PREDNISOLONE [Suspect]
     Indication: POLYMYOSITIS
     Dosage: 60 MG, DAILY
     Route: 065
  2. AZATHIOPRINE [Suspect]
     Indication: POLYMYOSITIS
     Dosage: 100 MG, DAILY
     Route: 065

REACTIONS (1)
  - PNEUMATOSIS INTESTINALIS [None]
